FAERS Safety Report 11325555 (Version 2)
Quarter: 2015Q3

REPORT INFORMATION
  Report Type: Spontaneous
  Country: JP (occurrence: JP)
  Receive Date: 20150731
  Receipt Date: 20150922
  Transmission Date: 20151125
  Serious: Yes (Other)
  Sender: FDA-Public Use
  Company Number: JP-009507513-1507JPN012245

PATIENT
  Age: 49 Year
  Sex: Male

DRUGS (2)
  1. PEGINTRON [Suspect]
     Active Substance: PEGINTERFERON ALFA-2B
     Dosage: DAILY DOSAGE UNKNOWN
     Route: 058
     Dates: start: 201403, end: 201408
  2. REBETOL [Suspect]
     Active Substance: RIBAVIRIN
     Dosage: DAILY DOSAGE UNKNOWN
     Route: 048
     Dates: start: 201403, end: 201408

REACTIONS (2)
  - Diarrhoea [Unknown]
  - Abdominal pain [Unknown]
